FAERS Safety Report 5171448-5 (Version None)
Quarter: 2006Q4

REPORT INFORMATION
  Report Type: 
  Country: None (occurrence: None)
  Receive Date: 20061213
  Receipt Date: 20060629
  Transmission Date: 20070319
  Serious: Yes (Hospitalization)
  Sender: FDA-Public Use
  Company Number: US-AVENTIS-200615580US

PATIENT
  Sex: Female

DRUGS (3)
  1. LANTUS [Suspect]
     Indication: DIABETES MELLITUS NON-INSULIN-DEPENDENT
     Dates: start: 20060201
  2. OPTICLIK (INSULIN INJECTION PEN) [Suspect]
     Dosage: DOSE: UNK
  3. UNKNOWN DRUG [Concomitant]
     Dosage: DOSE: UNK

REACTIONS (8)
  - ABDOMINAL PAIN [None]
  - ACCIDENT [None]
  - BACK PAIN [None]
  - DEVICE BREAKAGE [None]
  - LIMB INJURY [None]
  - PHARMACEUTICAL PRODUCT COMPLAINT [None]
  - POST PROCEDURAL COMPLICATION [None]
  - RENAL CELL CARCINOMA STAGE UNSPECIFIED [None]
